FAERS Safety Report 7392428-5 (Version None)
Quarter: 2011Q1

REPORT INFORMATION
  Report Type: 
  Country: None (occurrence: None)
  Receive Date: 20110330
  Receipt Date: 20110330
  Transmission Date: 20110831
  Serious: Yes (Other)
  Sender: FDA-Public Use
  Company Number: None

PATIENT
  Sex: Male

DRUGS (2)
  1. ALLEGRA [Suspect]
     Dosage: 1 TABLET PO
     Route: 048
     Dates: start: 20110325, end: 20110325
  2. ALLEGRA [Suspect]
     Dosage: 1 TABLET PO
     Route: 048
     Dates: start: 20110328, end: 20110328

REACTIONS (2)
  - INSOMNIA [None]
  - MIDDLE INSOMNIA [None]
